FAERS Safety Report 5890258-4 (Version None)
Quarter: 2008Q3

REPORT INFORMATION
  Report Type: 
  Country: None (occurrence: None)
  Receive Date: 20080919
  Receipt Date: 20080909
  Transmission Date: 20090109
  Serious: Yes (Other)
  Sender: FDA-Public Use
  Company Number: US-PFIZER INC-2008077211

PATIENT
  Sex: Female
  Weight: 57.6 kg

DRUGS (9)
  1. CHANTIX [Suspect]
     Indication: SMOKING CESSATION THERAPY
     Dates: start: 20080801
  2. GEODON [Concomitant]
  3. PROVIGIL [Concomitant]
  4. TRAZODONE HCL [Concomitant]
  5. ELAVIL [Concomitant]
  6. PREVACID [Concomitant]
     Indication: GASTROOESOPHAGEAL REFLUX DISEASE
  7. WELLBUTRIN [Concomitant]
     Indication: DEPRESSION
  8. PREDNISONE [Concomitant]
  9. NICORETTE [Concomitant]

REACTIONS (1)
  - DEPRESSION [None]
